FAERS Safety Report 17967900 (Version 1)
Quarter: 2020Q3

REPORT INFORMATION
  Report Type: Spontaneous
  Country: US (occurrence: US)
  Receive Date: 20200701
  Receipt Date: 20200701
  Transmission Date: 20201103
  Serious: Yes (Other)
  Sender: FDA-Public Use
  Company Number: US-009507513-2006USA009906

PATIENT
  Sex: Male
  Weight: 74.8 kg

DRUGS (12)
  1. FOLIC ACID. [Concomitant]
     Active Substance: FOLIC ACID
     Dosage: UNK
     Dates: end: 2020
  2. PROSCAR [Concomitant]
     Active Substance: FINASTERIDE
  3. SINEMET [Suspect]
     Active Substance: CARBIDOPA\LEVODOPA
     Dosage: UNK
     Route: 048
  4. AMANTADINE. [Suspect]
     Active Substance: AMANTADINE HYDROCHLORIDE
     Dosage: 274 MILLIGRAM, ONCE A DAY, AT BEDTIME
     Route: 048
     Dates: start: 2020
  5. MYRBETRIQ [Suspect]
     Active Substance: MIRABEGRON
     Indication: NOCTURIA
     Dosage: UNK
     Dates: start: 202001, end: 202001
  6. AMANTADINE. [Suspect]
     Active Substance: AMANTADINE HYDROCHLORIDE
     Indication: DYSKINESIA
     Dosage: 137 MILLIGRAM, ONCE A DAY, AT BEDTIME
     Route: 048
     Dates: start: 202002, end: 20200229
  7. AMANTADINE. [Suspect]
     Active Substance: AMANTADINE HYDROCHLORIDE
     Dosage: 274 MILLIGRAM, ONCE A DAY, AT BEDTIME
     Route: 048
     Dates: start: 20200301, end: 20200303
  8. AMANTADINE. [Suspect]
     Active Substance: AMANTADINE HYDROCHLORIDE
     Dosage: 137 MILLIGRAM, ONCE A DAY, AT BEDTIME
     Route: 048
     Dates: start: 20200330, end: 2020
  9. ATORVASTATIN [Concomitant]
     Active Substance: ATORVASTATIN
  10. TAMSULOSIN HYDROCHLORIDE. [Concomitant]
     Active Substance: TAMSULOSIN HYDROCHLORIDE
  11. METHOTREXATE. [Concomitant]
     Active Substance: METHOTREXATE
     Dosage: UNK
     Dates: end: 2020
  12. ALMETEC [Concomitant]
     Active Substance: OLMESARTAN MEDOXOMIL

REACTIONS (11)
  - Dehydration [Unknown]
  - Blood pressure increased [Recovered/Resolved]
  - Dizziness [Recovered/Resolved]
  - Expired product administered [Unknown]
  - Abnormal dreams [Recovering/Resolving]
  - Product dose omission issue [Unknown]
  - Nocturia [Unknown]
  - Weight decreased [Not Recovered/Not Resolved]
  - Nausea [Not Recovered/Not Resolved]
  - Hallucination, visual [Recovering/Resolving]
  - Memory impairment [Recovering/Resolving]

NARRATIVE: CASE EVENT DATE: 2020
